FAERS Safety Report 6501494-8 (Version None)
Quarter: 2009Q4

REPORT INFORMATION
  Report Type: 
  Country: None (occurrence: None)
  Receive Date: 20091216
  Receipt Date: 20091208
  Transmission Date: 20100525
  Serious: Yes (Other)
  Sender: FDA-Public Use
  Company Number: A0801367A

PATIENT
  Age: 83 Year
  Sex: Female

DRUGS (9)
  1. ADVAIR DISKUS 100/50 [Suspect]
     Indication: CHRONIC OBSTRUCTIVE PULMONARY DISEASE
     Dosage: 1PUFF TWICE PER DAY
     Route: 055
     Dates: start: 20080101
  2. TYLENOL (CAPLET) [Concomitant]
  3. LANOXIN [Concomitant]
  4. THYROID MEDICATION [Concomitant]
  5. BLOOD PRESSURE MEDICATION [Concomitant]
  6. HEART MEDICATION [Concomitant]
  7. TOPROL-XL [Concomitant]
  8. VITAMINS [Concomitant]
  9. COUMADIN [Concomitant]

REACTIONS (2)
  - VISUAL ACUITY REDUCED [None]
  - VISUAL IMPAIRMENT [None]
